FAERS Safety Report 8062615-1 (Version None)
Quarter: 2012Q1

REPORT INFORMATION
  Report Type: 
  Country: None (occurrence: None)
  Receive Date: 20120123
  Receipt Date: 20120116
  Transmission Date: 20120608
  Serious: Yes (Death, Hospitalization)
  Sender: FDA-Public Use
  Company Number: IT-ASTELLAS-2012US000523

PATIENT
  Sex: Male

DRUGS (1)
  1. TARCEVA [Suspect]
     Indication: LUNG SQUAMOUS CELL CARCINOMA METASTATIC
     Dosage: 150 MG, UID/QD
     Route: 048
     Dates: start: 20111207, end: 20120105

REACTIONS (3)
  - DEATH [None]
  - CARDIOGENIC SHOCK [None]
  - ACUTE RESPIRATORY FAILURE [None]
